FAERS Safety Report 6756916-4 (Version None)
Quarter: 2010Q2

REPORT INFORMATION
  Report Type: 
  Country: None (occurrence: None)
  Receive Date: 20100603
  Receipt Date: 20100603
  Transmission Date: 20101027
  Serious: No
  Sender: FDA-Public Use
  Company Number: None

PATIENT
  Age: 57 Year
  Sex: Male
  Weight: 92 kg

DRUGS (2)
  1. OXYCODONE [Suspect]
     Indication: PAIN
     Dosage: 15 MG PRN PO
     Route: 048
     Dates: start: 20091108, end: 20091108
  2. FENTANYL [Suspect]
     Indication: PAIN
     Dosage: 75 MCG OTHER TOP
     Route: 061

REACTIONS (5)
  - BRADYCARDIA [None]
  - HYPOTENSION [None]
  - MIOSIS [None]
  - RESPIRATORY DEPRESSION [None]
  - SEDATION [None]
